FAERS Safety Report 17575783 (Version 1)
Quarter: 2020Q1

REPORT INFORMATION
  Report Type: Spontaneous
  Country: US (occurrence: US)
  Receive Date: 20200324
  Receipt Date: 20200324
  Transmission Date: 20200409
  Serious: Yes (Other)
  Sender: FDA-Public Use
  Company Number: US-UCBSA-2019055119

PATIENT
  Age: 52 Year
  Sex: Female
  Weight: 74.38 kg

DRUGS (2)
  1. CIMZIA [Suspect]
     Active Substance: CERTOLIZUMAB PEGOL
     Indication: ANKYLOSING SPONDYLITIS
     Dosage: 400 MILLIGRAM, EV 4 WEEKS
     Route: 058
     Dates: start: 20191031
  2. CIMZIA [Suspect]
     Active Substance: CERTOLIZUMAB PEGOL
     Indication: SPONDYLOARTHROPATHY

REACTIONS (5)
  - Diarrhoea [Unknown]
  - Abdominal pain [Unknown]
  - Pain [Unknown]
  - Cholecystectomy [Unknown]
  - Malabsorption [Unknown]

NARRATIVE: CASE EVENT DATE: 20200228
